FAERS Safety Report 17261885 (Version 1)
Quarter: 2020Q1

REPORT INFORMATION
  Report Type: Spontaneous
  Country: DE (occurrence: DE)
  Receive Date: 20200113
  Receipt Date: 20200113
  Transmission Date: 20200409
  Serious: Yes (Other)
  Sender: FDA-Public Use
  Company Number: DE-PFIZER INC-2020010538

PATIENT
  Age: 1 Day
  Sex: Male
  Weight: 3.66 kg

DRUGS (2)
  1. L-THYROXIN [LEVOTHYROXINE SODIUM] [Concomitant]
     Active Substance: LEVOTHYROXINE SODIUM
     Indication: HYPOTHYROIDISM
     Dosage: 75 UG, 1X/DAY (75 [?G/D ])
     Route: 064
     Dates: start: 20180918, end: 20190605
  2. VENLAFAXINE HCL [Suspect]
     Active Substance: VENLAFAXINE HYDROCHLORIDE
     Indication: DEPRESSION
     Dosage: 75 MG, 1X/DAY (75 [MG/D ])
     Route: 064
     Dates: start: 20180918, end: 20190605

REACTIONS (5)
  - Oxygen saturation decreased [Recovered/Resolved]
  - Respiratory disorder neonatal [Recovered/Resolved]
  - Myoclonus [Recovered/Resolved]
  - Atrial septal defect [Unknown]
  - Maternal exposure during pregnancy [Unknown]

NARRATIVE: CASE EVENT DATE: 20190605
